FAERS Safety Report 16132784 (Version 1)
Quarter: 2019Q1

REPORT INFORMATION
  Report Type: Spontaneous
  Country: US (occurrence: US)
  Receive Date: 20190329
  Receipt Date: 20190329
  Transmission Date: 20190418
  Serious: No
  Sender: FDA-Public Use
  Company Number: US-PFIZER INC-2019129201

PATIENT
  Sex: Female

DRUGS (1)
  1. CRISABOROLE [Suspect]
     Active Substance: CRISABOROLE
     Indication: NAIL PSORIASIS
     Dosage: UNK

REACTIONS (1)
  - Drug effective for unapproved indication [Unknown]
